FAERS Safety Report 8913445 (Version 2)
Quarter: 2013Q1

REPORT INFORMATION
  Report Type: Report from Study
  Country: US (occurrence: US)
  Receive Date: 20121119
  Receipt Date: 20130214
  Transmission Date: 20140127
  Serious: Yes (Hospitalization, Other)
  Sender: FDA-Public Use
  Company Number: US-JNJFOC-20121104428

PATIENT
  Age: 32 Year
  Sex: 0

DRUGS (7)
  1. REMICADE [Suspect]
     Indication: PSORIATIC ARTHROPATHY
     Dosage: TREATED WITH REMICADE FOR 6 YEARS
     Route: 042
  2. REMICADE [Suspect]
     Indication: PSORIATIC ARTHROPATHY
     Route: 042
  3. REMICADE [Suspect]
     Indication: PSORIASIS
     Route: 042
  4. REMICADE [Suspect]
     Indication: PSORIASIS
     Dosage: TREATED WITH REMICADE FOR 6 YEARS
     Route: 042
  5. HUMIRA [Suspect]
     Indication: PSORIATIC ARTHROPATHY
     Dosage: TREATED WITH HUMIRA FOR 4 MONTHS
     Route: 065
  6. HUMIRA [Suspect]
     Indication: PSORIASIS
     Dosage: TREATED WITH HUMIRA FOR 4 MONTHS
     Route: 065
  7. PAIN MEDICATIONS (NOS) [Concomitant]
     Indication: PAIN MANAGEMENT

REACTIONS (17)
  - Lupus-like syndrome [Unknown]
  - Dehydration [Unknown]
  - Therapeutic response decreased [Unknown]
  - Hypertension [Unknown]
  - Hypotension [Unknown]
  - Vomiting [Unknown]
  - Aphagia [Unknown]
  - Arthritis [Unknown]
  - Flushing [Unknown]
  - Feeling cold [Unknown]
  - Hyperhidrosis [Unknown]
  - Nausea [Unknown]
  - Pruritus [Unknown]
  - Discomfort [Unknown]
  - Fatigue [Unknown]
  - Hypersomnia [Unknown]
  - Emotional disorder [Unknown]
